FAERS Safety Report 17057991 (Version 1)
Quarter: 2019Q4

REPORT INFORMATION
  Report Type: Spontaneous
  Country: CA (occurrence: CA)
  Receive Date: 20191121
  Receipt Date: 20191121
  Transmission Date: 20200122
  Serious: Yes (Hospitalization, Other)
  Sender: FDA-Public Use
  Company Number: CA-PFIZER INC-2019498394

PATIENT
  Age: 56 Year
  Sex: Female
  Weight: 59 kg

DRUGS (4)
  1. PACLITAXEL. [Suspect]
     Active Substance: PACLITAXEL
     Indication: OVARIAN ENDOMETRIOID CARCINOMA
     Dosage: 175 MG/M2, SINGLE
     Route: 042
  2. RANITIDINE. [Concomitant]
     Active Substance: RANITIDINE
     Dosage: UNK (REPORTED AS SOLUTION INTRAMUSCULAR)
     Route: 030
  3. DEXAMETHASONE. [Concomitant]
     Active Substance: DEXAMETHASONE
     Dosage: UNK (REPORTED AS LIQUID INTRA-ARTICULAR)
     Route: 014
  4. DIPHENHYDRAMINE HYDROCHLORIDE. [Concomitant]
     Active Substance: DIPHENHYDRAMINE HYDROCHLORIDE
     Dosage: UNK (REPORTED AS LIQUID INTRAMUSCULAR)
     Route: 030

REACTIONS (7)
  - Feeling hot [Recovered/Resolved]
  - Vital functions abnormal [Recovered/Resolved]
  - Urinary incontinence [Recovered/Resolved]
  - Seizure like phenomena [Recovered/Resolved]
  - Unresponsive to stimuli [Recovered/Resolved]
  - Erythema [Recovered/Resolved]
  - Pupil fixed [Recovered/Resolved]
